FAERS Safety Report 9929426 (Version 2)
Quarter: 2014Q1

REPORT INFORMATION
  Report Type: Spontaneous
  Country: US (occurrence: US)
  Receive Date: 20140227
  Receipt Date: 20140320
  Transmission Date: 20141002
  Serious: Yes (Hospitalization)
  Sender: FDA-Public Use
  Company Number: US-JNJFOC-20140215853

PATIENT
  Age: 33 Year
  Sex: Female
  Weight: 70.31 kg

DRUGS (22)
  1. NUCYNTA IR [Suspect]
     Indication: PAIN
     Route: 048
     Dates: start: 201201
  2. NUCYNTA IR [Suspect]
     Indication: PAIN
     Route: 048
     Dates: start: 2010, end: 201103
  3. HALDOL [Suspect]
     Indication: HEADACHE
     Route: 065
  4. TOPIRAMATE [Concomitant]
     Indication: MIGRAINE
     Route: 048
     Dates: start: 2009
  5. ADDERALL [Concomitant]
     Indication: ATTENTION DEFICIT/HYPERACTIVITY DISORDER
     Route: 048
     Dates: start: 201111
  6. PROZAC [Concomitant]
     Indication: DEPRESSION
     Route: 048
     Dates: start: 201312
  7. KLONOPIN [Concomitant]
     Indication: MUSCLE DISORDER
     Route: 048
     Dates: start: 2008
  8. KLONOPIN [Concomitant]
     Indication: ANXIETY
     Route: 048
     Dates: start: 2008
  9. MARINOL [Concomitant]
     Indication: NAUSEA
     Route: 048
     Dates: start: 201005
  10. NUVA RING [Concomitant]
     Indication: CONTRACEPTION
     Dosage: ONE RING, MONTHLY
     Route: 015
     Dates: start: 201107
  11. VITAMIN B12 [Concomitant]
     Indication: NEUROPATHY PERIPHERAL
     Route: 030
     Dates: start: 201101
  12. LIDODERM [Concomitant]
     Indication: PAIN
     Route: 062
     Dates: start: 2008
  13. SYMBICORT [Concomitant]
     Indication: LUNG DISORDER
     Dates: start: 201304
  14. ADVAIR [Concomitant]
     Indication: DYSPNOEA
     Route: 055
     Dates: start: 201304
  15. SINGULAIR [Concomitant]
     Indication: DYSPNOEA
     Route: 048
     Dates: start: 201304
  16. PRO-AIR [Concomitant]
     Indication: DYSPNOEA
     Dates: start: 201304
  17. LOPRESSOR [Concomitant]
     Indication: SLEEP DISORDER THERAPY
     Route: 048
  18. ELAVIL [Concomitant]
     Indication: SLEEP DISORDER THERAPY
     Route: 048
  19. CELEBREX [Concomitant]
     Indication: PAIN
     Route: 048
  20. ZANAFLEX [Concomitant]
     Indication: MUSCLE SPASTICITY
     Route: 048
  21. RETIN A [Concomitant]
     Indication: SKIN DISORDER
     Route: 061
  22. LIDOCAINE [Concomitant]
     Indication: RHINALGIA
     Dosage: DAILY
     Route: 045

REACTIONS (10)
  - Livedo reticularis [Not Recovered/Not Resolved]
  - Blood magnesium decreased [Recovered/Resolved]
  - Dyspnoea [Recovered/Resolved]
  - Pain [Recovered/Resolved]
  - Drug dependence [Unknown]
  - Drug level increased [Unknown]
  - Road traffic accident [Recovered/Resolved]
  - Drug dose omission [Unknown]
  - Drug ineffective [Unknown]
  - Off label use [Unknown]
